FAERS Safety Report 6315364-1 (Version None)
Quarter: 2009Q3

REPORT INFORMATION
  Report Type: 
  Country: None (occurrence: None)
  Receive Date: 20090819
  Receipt Date: 20090813
  Transmission Date: 20100115
  Serious: Yes (Life-Threatening)
  Sender: FDA-Public Use
  Company Number: DE-ROCHE-647908

PATIENT
  Sex: Male
  Weight: 79 kg

DRUGS (2)
  1. XELODA [Suspect]
     Indication: DRUG USE FOR UNKNOWN INDICATION
     Route: 065
     Dates: start: 20080901
  2. AVASTIN [Suspect]
     Indication: RECTAL CANCER METASTATIC
     Dosage: FREQUENCY: 14 DAILY
     Route: 042
     Dates: start: 20080901, end: 20090701

REACTIONS (3)
  - ILEAL PERFORATION [None]
  - INTESTINAL ISCHAEMIA [None]
  - PERITONITIS [None]
